FAERS Safety Report 18545848 (Version 1)
Quarter: 2020Q4

REPORT INFORMATION
  Report Type: Spontaneous
  Country: SK (occurrence: SK)
  Receive Date: 20201125
  Receipt Date: 20201125
  Transmission Date: 20210114
  Serious: Yes (Hospitalization)
  Sender: FDA-Public Use
  Company Number: SK-JNJFOC-20201134392

PATIENT
  Age: 86 Year
  Sex: Male
  Weight: 71.5 kg

DRUGS (2)
  1. CELECOXIB. [Concomitant]
     Active Substance: CELECOXIB
     Indication: ATRIAL FLUTTER
     Dosage: 200 MG, QD
     Route: 048
  2. XARELTO [Suspect]
     Active Substance: RIVAROXABAN
     Indication: ATRIAL FLUTTER
     Dosage: 15 MG, QD
     Route: 048

REACTIONS (1)
  - Anaemia [Recovered/Resolved]

NARRATIVE: CASE EVENT DATE: 20200615
